FAERS Safety Report 5567506-3 (Version None)
Quarter: 2007Q4

REPORT INFORMATION
  Report Type: 
  Country: None (occurrence: None)
  Receive Date: 20071130
  Receipt Date: 20070905
  Transmission Date: 20080405
  Serious: No
  Sender: FDA-Public Use
  Company Number: US200709000910

PATIENT
  Age: 69 Year
  Sex: Female
  Weight: 105.2 kg

DRUGS (9)
  1. BYETTA [Suspect]
     Indication: TYPE 2 DIABETES MELLITUS
     Dosage: 5 UG, 2/D, SUBCUTANEOUS
     Route: 058
     Dates: start: 20070824, end: 20070827
  2. EXENATIDE 5MCG PEN,DISPOSABLE DEVICE (EXENATIDE PEN (5MCG))) PEN,DISPO [Concomitant]
  3. BENICAR HCT (HYDROCHLOROTHIAZIDE, OLEMSARTAN MEDOXOMIL) [Concomitant]
  4. ACTOS [Concomitant]
  5. CRESTOR [Concomitant]
  6. PROTONIX [Concomitant]
  7. FORTAMET (METFORMIN HYDROCHLORIDE) [Concomitant]
  8. LEVOTHYROXINE SODIUM [Concomitant]
  9. GLIMEPRIDE (GLIMEPIRIDE) [Concomitant]

REACTIONS (6)
  - CHEST DISCOMFORT [None]
  - DIARRHOEA [None]
  - DYSPNOEA [None]
  - FLUID OVERLOAD [None]
  - STOMACH DISCOMFORT [None]
  - SWELLING [None]
